FAERS Safety Report 17965403 (Version 2)
Quarter: 2021Q2

REPORT INFORMATION
  Report Type: Report from Study
  Country: US (occurrence: US)
  Receive Date: 20200630
  Receipt Date: 20210420
  Transmission Date: 20210717
  Serious: No
  Sender: FDA-Public Use
  Company Number: US-SA-2020SA168092

PATIENT
  Age: 55 Year
  Sex: Female

DRUGS (5)
  1. DUPIXENT [Suspect]
     Active Substance: DUPILUMAB
     Dosage: 300 MG, QOW
     Route: 058
     Dates: start: 20190109
  2. RABEPRAZOLE [Concomitant]
     Active Substance: RABEPRAZOLE
     Dosage: UNK
     Route: 065
  3. DUPIXENT [Suspect]
     Active Substance: DUPILUMAB
     Indication: ASTHMA
     Dosage: UNK UNK, 1X
     Route: 058
     Dates: start: 20190109
  4. SYMBICORT [Concomitant]
     Active Substance: BUDESONIDE\FORMOTEROL FUMARATE DIHYDRATE
     Route: 065
  5. SYNTHROID [Concomitant]
     Active Substance: LEVOTHYROXINE SODIUM
     Route: 065

REACTIONS (10)
  - Injection site reaction [Unknown]
  - Myalgia [Unknown]
  - Cold-stimulus headache [Unknown]
  - Dry eye [Unknown]
  - Off label use [Unknown]
  - Injection site swelling [Unknown]
  - Muscle spasms [Unknown]
  - Arthralgia [Unknown]
  - Injection site erythema [Unknown]
  - Disorientation [Unknown]

NARRATIVE: CASE EVENT DATE: 202102
